FAERS Safety Report 19658250 (Version 2)
Quarter: 2021Q3

REPORT INFORMATION
  Report Type: Spontaneous
  Country: US (occurrence: US)
  Receive Date: 20210804
  Receipt Date: 20210826
  Transmission Date: 20211014
  Serious: No
  Sender: FDA-Public Use
  Company Number: US-GILEAD-2021-0542967

PATIENT
  Age: 35 Year
  Sex: Female

DRUGS (6)
  1. GABAPENTIN. [Concomitant]
     Active Substance: GABAPENTIN
  2. SOFOSBUVIR;VELPATASVIR [Suspect]
     Active Substance: SOFOSBUVIR\VELPATASVIR
     Dosage: 1 DOSAGE FORM, QD
     Route: 048
     Dates: start: 20210705
  3. SUBOXONE [Concomitant]
     Active Substance: BUPRENORPHINE HYDROCHLORIDE\NALOXONE HYDROCHLORIDE
  4. BC HEADACHE [ACETYLSALICYLIC ACID] [Concomitant]
  5. SOFOSBUVIR;VELPATASVIR [Suspect]
     Active Substance: SOFOSBUVIR\VELPATASVIR
     Indication: CHRONIC HEPATITIS C
     Dosage: 1 DOSAGE FORM, QD
     Route: 048
  6. MELATONIN [Concomitant]
     Active Substance: MELATONIN

REACTIONS (6)
  - Intentional dose omission [Unknown]
  - Headache [Not Recovered/Not Resolved]
  - Lethargy [Not Recovered/Not Resolved]
  - Dyspnoea [Not Recovered/Not Resolved]
  - Fatigue [Unknown]
  - Neck mass [Unknown]

NARRATIVE: CASE EVENT DATE: 20210802
